FAERS Safety Report 14552175 (Version 5)
Quarter: 2018Q2

REPORT INFORMATION
  Report Type: Report from Study
  Country: US (occurrence: US)
  Receive Date: 20180220
  Receipt Date: 20180608
  Transmission Date: 20180711
  Serious: Yes (Hospitalization, Disabling)
  Sender: FDA-Public Use
  Company Number: US-ROCHE-2053245

PATIENT
  Age: 50 Year
  Sex: Male
  Weight: 73 kg

DRUGS (47)
  1. ACETAMINOPHEN. [Concomitant]
     Active Substance: ACETAMINOPHEN
     Route: 065
     Dates: start: 20130511, end: 20130626
  2. METHYLPREDNISOLONE. [Concomitant]
     Active Substance: METHYLPREDNISOLONE
     Dosage: ALSO RECEIVED 40 MG
     Route: 065
     Dates: start: 20171226, end: 20171227
  3. PROTANDIM [Concomitant]
     Active Substance: DIETARY SUPPLEMENT
     Route: 065
     Dates: start: 20170615, end: 20170915
  4. PROTANDIM [Concomitant]
     Active Substance: DIETARY SUPPLEMENT
     Route: 065
     Dates: start: 20160416, end: 20170401
  5. R-LIPOIC ACID [Concomitant]
     Route: 065
     Dates: start: 20141014
  6. VITAMIN E [Concomitant]
     Active Substance: .ALPHA.-TOCOPHEROL
     Route: 065
     Dates: start: 20110101, end: 20121101
  7. BACLOFEN. [Concomitant]
     Active Substance: BACLOFEN
     Indication: MUSCLE SPASMS
     Route: 065
     Dates: start: 20171223, end: 20171229
  8. BENADRYL [Concomitant]
     Active Substance: DIPHENHYDRAMINE HYDROCHLORIDE
     Route: 065
     Dates: start: 20160908, end: 20161027
  9. OCRELIZUMAB. [Suspect]
     Active Substance: OCRELIZUMAB
     Route: 042
     Dates: start: 20160721
  10. ONDANSETRON [Concomitant]
     Active Substance: ONDANSETRON
     Indication: NAUSEA
     Route: 065
     Dates: start: 20171223, end: 20171227
  11. ISOVUE [Concomitant]
     Active Substance: IOPAMIDOL
     Route: 065
     Dates: start: 20171226, end: 20171226
  12. ARNICA CREAM [Concomitant]
     Indication: ANALGESIC THERAPY
     Route: 065
     Dates: start: 20140508
  13. TAMSULOSIN [Concomitant]
     Active Substance: TAMSULOSIN
     Indication: NEUROGENIC BLADDER
     Route: 065
     Dates: start: 20140508
  14. VALIUM [Concomitant]
     Active Substance: DIAZEPAM
  15. SKULLCAP [Concomitant]
     Active Substance: SCUTELLARIA LATERIFLORA
     Route: 065
     Dates: start: 20141014
  16. GADAVIST [Concomitant]
     Active Substance: GADOBUTROL
     Route: 065
     Dates: start: 20180223, end: 20180223
  17. OCRELIZUMAB. [Suspect]
     Active Substance: OCRELIZUMAB
     Indication: PRIMARY PROGRESSIVE MULTIPLE SCLEROSIS
     Dosage: TWO IV INFUSIONS OF OCRELIZUMAB 300 MG SEPARATED BY 14 DAYS FOR CYCLE 1 AND SINGLE IV INFUSION OF OC
     Route: 042
     Dates: start: 20160205
  18. ACETAMINOPHEN. [Concomitant]
     Active Substance: ACETAMINOPHEN
     Indication: HEADACHE
     Dosage: SUBSEQUENT DOSE ON 14/NOV/2012, 27/NOV/2012, 01/MAY/2013, 16/MAY/2013, 05/NOV/13, 02/APR/2014, 16/AP
     Route: 065
     Dates: start: 20121114
  19. ACETAMINOPHEN. [Concomitant]
     Active Substance: ACETAMINOPHEN
     Indication: PYREXIA
     Route: 065
     Dates: start: 20140403, end: 20140515
  20. DIPHENHYDRAMINE. [Concomitant]
     Active Substance: DIPHENHYDRAMINE
     Route: 048
     Dates: start: 20131022
  21. VITAMIN E [Concomitant]
     Active Substance: .ALPHA.-TOCOPHEROL
     Route: 065
     Dates: start: 20151130, end: 20180101
  22. BACLOFEN. [Concomitant]
     Active Substance: BACLOFEN
     Indication: MUSCLE SPASTICITY
     Route: 065
     Dates: start: 20170627, end: 20170704
  23. BACLOFEN. [Concomitant]
     Active Substance: BACLOFEN
     Route: 065
     Dates: start: 20171230, end: 20180222
  24. GADAVIST [Concomitant]
     Active Substance: GADOBUTROL
     Route: 065
     Dates: start: 20170126, end: 20170126
  25. OCRELIZUMAB. [Suspect]
     Active Substance: OCRELIZUMAB
     Route: 042
     Dates: start: 20160805
  26. ACETAMINOPHEN. [Concomitant]
     Active Substance: ACETAMINOPHEN
     Indication: RESPIRATORY SYMPTOM
     Route: 048
     Dates: start: 20131022
  27. METHYLPREDNISOLONE. [Concomitant]
     Active Substance: METHYLPREDNISOLONE
     Indication: PNEUMONIA
     Dosage: SUBSEQUENT DOSES RECEIVED ON, 27/NOV/2012,0 1/MAY/2013, 16/MAY/2013, 22/OCT/2013, 05/NOV/2013, 02/AP
     Route: 065
     Dates: start: 20121114
  28. ONDANSETRON [Concomitant]
     Active Substance: ONDANSETRON
     Indication: VOMITING
  29. BENADRYL [Concomitant]
     Active Substance: DIPHENHYDRAMINE HYDROCHLORIDE
     Route: 065
     Dates: start: 20180525
  30. ALPHA LIPOIC ACID [Concomitant]
     Active Substance: .ALPHA.-LIPOIC ACID
     Route: 065
     Dates: start: 20170601, end: 20171222
  31. ACETAMINOPHEN. [Concomitant]
     Active Substance: ACETAMINOPHEN
     Indication: BACK PAIN
     Dosage: SUBSEQUENT DOSE ON 01/SEP/2014
     Route: 065
     Dates: start: 20050701
  32. ACETAMINOPHEN. [Concomitant]
     Active Substance: ACETAMINOPHEN
     Route: 065
     Dates: start: 20150813, end: 20151215
  33. ASHWAGANDHA [Concomitant]
     Active Substance: HERBALS
     Dosage: 0.5 TEASPOON
     Route: 065
     Dates: start: 20150401
  34. PROTANDIM [Concomitant]
     Active Substance: DIETARY SUPPLEMENT
     Route: 065
     Dates: start: 20150802, end: 20160415
  35. BACLOFEN. [Concomitant]
     Active Substance: BACLOFEN
     Route: 065
     Dates: start: 20170223
  36. TAMIFLU [Concomitant]
     Active Substance: OSELTAMIVIR PHOSPHATE
     Route: 065
     Dates: start: 20180115, end: 20180127
  37. OCRELIZUMAB. [Suspect]
     Active Substance: OCRELIZUMAB
     Dosage: SUBSEQUENT DOSES RECEIVED ON  25/MAY/2018
     Route: 042
     Dates: start: 20171207
  38. ACETAMINOPHEN. [Concomitant]
     Active Substance: ACETAMINOPHEN
     Route: 065
     Dates: start: 20160211, end: 20160218
  39. ACETAMINOPHEN. [Concomitant]
     Active Substance: ACETAMINOPHEN
     Route: 065
     Dates: start: 20171223
  40. FOLIC ACID. [Concomitant]
     Active Substance: FOLIC ACID
     Route: 065
     Dates: start: 20110501, end: 20171101
  41. PROTANDIM [Concomitant]
     Active Substance: DIETARY SUPPLEMENT
     Indication: FATIGUE
     Route: 065
     Dates: start: 20150801, end: 20150821
  42. SKULLCAP [Concomitant]
     Active Substance: SCUTELLARIA LATERIFLORA
     Route: 065
     Dates: start: 20111101, end: 20140601
  43. ACETAMINOPHEN. [Concomitant]
     Active Substance: ACETAMINOPHEN
     Route: 065
     Dates: start: 20140323, end: 20140331
  44. DIPHENHYDRAMINE. [Concomitant]
     Active Substance: DIPHENHYDRAMINE
     Dosage: SUBSEQUENT DOSES RECEIVED ON 27/NOV/2012, 01/MAY/2013, 16/MAY/2013, 05/NOV/2013, 02/APR/2014, 16/APR
     Route: 065
     Dates: start: 20121114
  45. CANNABIDIOL [Concomitant]
     Active Substance: CANNABIDIOL
     Indication: MUSCLE SPASTICITY
     Dosage: RECIEVED ON 15NOV/2017
     Route: 065
     Dates: start: 20171014
  46. VITAMIN B6 [Concomitant]
     Active Substance: PYRIDOXINE HYDROCHLORIDE
     Route: 065
     Dates: start: 20130901
  47. OCRELIZUMAB. [Suspect]
     Active Substance: OCRELIZUMAB
     Indication: PRIMARY PROGRESSIVE MULTIPLE SCLEROSIS
     Dosage: TWO INTRAVENOUS (IV) INFUSIONS OF BLINDED OCRELIZUMAB SEPARATED BY 14 DAYS IN EACH TREATMENT CYCLE O
     Route: 042
     Dates: start: 20121114, end: 20160204

REACTIONS (2)
  - Pneumonia [Recovered/Resolved]
  - Urinary retention [Recovered/Resolved]

NARRATIVE: CASE EVENT DATE: 20171222
